FAERS Safety Report 10265678 (Version 3)
Quarter: 2015Q2

REPORT INFORMATION
  Report Type: Spontaneous
  Country: AR (occurrence: AR)
  Receive Date: 20140627
  Receipt Date: 20150521
  Transmission Date: 20150821
  Serious: Yes (Other)
  Sender: FDA-Public Use
  Company Number: CHPA2014AR008727

PATIENT
  Sex: Male

DRUGS (1)
  1. NICOTINELL [Suspect]
     Active Substance: NICOTINE
     Indication: SMOKING CESSATION THERAPY
     Dosage: 10 DF, QD, SOMETIMES UP TO 12 DAILY
     Route: 048
     Dates: start: 20140223

REACTIONS (12)
  - Nausea [Unknown]
  - Incorrect dose administered [Unknown]
  - Nervousness [Recovering/Resolving]
  - Anxiety [Recovering/Resolving]
  - Feeling of despair [Recovering/Resolving]
  - Malaise [Unknown]
  - Somnolence [Unknown]
  - Gallbladder disorder [Unknown]
  - Fatigue [Unknown]
  - Lung disorder [Unknown]
  - Drug dependence [Recovering/Resolving]
  - Aggression [Recovering/Resolving]
